FAERS Safety Report 6195280-9 (Version None)
Quarter: 2009Q2

REPORT INFORMATION
  Report Type: 
  Country: None (occurrence: None)
  Receive Date: 20090519
  Receipt Date: 20090504
  Transmission Date: 20091009
  Serious: Yes (Hospitalization)
  Sender: FDA-Public Use
  Company Number: FR-GENENTECH-282975

PATIENT
  Age: 27 Year
  Sex: Male

DRUGS (5)
  1. MABTHERA [Suspect]
     Indication: BURKITT'S LYMPHOMA
     Dosage: UNK
     Route: 042
     Dates: start: 20090213
  2. ENDOXAN [Suspect]
     Indication: BURKITT'S LYMPHOMA
     Dosage: UNK
     Route: 042
     Dates: start: 20090206
  3. METHOTREXATE [Suspect]
     Indication: BURKITT'S LYMPHOMA
     Dosage: UNK
     Route: 042
     Dates: start: 20090206
  4. VINCRISTINE [Suspect]
     Indication: BURKITT'S LYMPHOMA
     Dosage: UNK
     Route: 042
     Dates: start: 20090206
  5. DOXORUBICIN HCL [Suspect]
     Indication: BURKITT'S LYMPHOMA
     Dosage: UNK
     Route: 042
     Dates: start: 20090215

REACTIONS (1)
  - SEGMENTED HYALINISING VASCULITIS [None]
